FAERS Safety Report 6260587-3 (Version None)
Quarter: 2009Q3

REPORT INFORMATION
  Report Type: 
  Country: None (occurrence: None)
  Receive Date: 20090706
  Receipt Date: 20090626
  Transmission Date: 20100115
  Serious: Yes (Other)
  Sender: FDA-Public Use
  Company Number: 2009JP003944

PATIENT
  Sex: Male

DRUGS (2)
  1. VESICARE [Suspect]
     Indication: HYPERTONIC BLADDER
     Dosage: 5 MG, UNKNOWN/D, ORAL
     Route: 048
     Dates: start: 20090401, end: 20090101
  2. HARMAL(TAMSULOSIN) ORODISPERSIBLE CR TABLET, UNKNOWN [Suspect]
     Indication: BENIGN PROSTATIC HYPERPLASIA
     Dosage: 0.2 MG, UNKNOWN/D, ORAL
     Route: 048
     Dates: start: 20090401

REACTIONS (2)
  - CONDITION AGGRAVATED [None]
  - DEMENTIA [None]
